FAERS Safety Report 6798347-7 (Version None)
Quarter: 2010Q2

REPORT INFORMATION
  Report Type: 
  Country: None (occurrence: None)
  Receive Date: 20100623
  Receipt Date: 20100609
  Transmission Date: 20101027
  Serious: Yes (Hospitalization)
  Sender: FDA-Public Use
  Company Number: 2009AL004239

PATIENT
  Age: 63 Year
  Sex: Male

DRUGS (15)
  1. IBUPROFEN ORAL SUSPENSION USP, 100 MG/5 ML (RX) (ALPHARMA) (IBUPROFEN) [Suspect]
     Indication: DRUG USE FOR UNKNOWN INDICATION
     Dosage: 400 MG;TID;PO
     Route: 048
     Dates: start: 20090420, end: 20090602
  2. PREDNISOLONE [Concomitant]
  3. CP-751871 [Concomitant]
  4. OXYCONTIN [Concomitant]
  5. DIAZEPAM [Concomitant]
  6. OMEPRAZOLE [Concomitant]
  7. OXYCODONE HCL [Concomitant]
  8. CYCLIZINE [Concomitant]
  9. ADCAL [Concomitant]
  10. ATENOLOL [Concomitant]
  11. LACTULOSE [Concomitant]
  12. SENNA [Concomitant]
  13. FRAGMIN [Concomitant]
  14. ALENDRONATE [Concomitant]
  15. NULYTELY [Concomitant]

REACTIONS (8)
  - ASTHENIA [None]
  - DECREASED APPETITE [None]
  - DEHYDRATION [None]
  - FATIGUE [None]
  - FLUID INTAKE REDUCED [None]
  - NAUSEA [None]
  - PALLOR [None]
  - RENAL FAILURE ACUTE [None]
